FAERS Safety Report 4381694-6 (Version None)
Quarter: 2004Q2

REPORT INFORMATION
  Report Type: 
  Country: None (occurrence: None)
  Receive Date: 20040614
  Receipt Date: 20031218
  Transmission Date: 20050107
  Serious: Yes (Life-Threatening, Hospitalization)
  Sender: FDA-Public Use
  Company Number: 2003191411US

PATIENT
  Age: 67 Year
  Sex: Male
  Weight: 72.6 kg

DRUGS (3)
  1. ZYVOX [Suspect]
     Indication: NOCARDIOSIS
     Dosage: 600 MG, BID, ORAL
     Route: 048
     Dates: start: 20030815, end: 20030905
  2. PROGRAF [Concomitant]
  3. CELLCEPT (MYOCAPHENOLATE MOFETIL) [Concomitant]

REACTIONS (2)
  - NEUTROPENIA [None]
  - THROMBOCYTOPENIA [None]
